FAERS Safety Report 4543185-9 (Version None)
Quarter: 2004Q4

REPORT INFORMATION
  Report Type: 
  Country: None (occurrence: None)
  Receive Date: 20041229
  Receipt Date: 20041216
  Transmission Date: 20050328
  Serious: Yes (Hospitalization, Other)
  Sender: FDA-Public Use
  Company Number: 2004103842

PATIENT
  Age: 43 Year
  Sex: Female
  Weight: 43 kg

DRUGS (12)
  1. DIFLUCAN [Suspect]
     Indication: ENCEPHALOPATHY
     Dosage: 400 MG (400 MG, 1 IN 1 D), ORAL
     Route: 048
     Dates: start: 20041013
  2. DIFLUCAN [Suspect]
     Indication: HISTOPLASMOSIS
     Dosage: 400 MG (400 MG, 1 IN 1 D), ORAL
     Route: 048
     Dates: start: 20041013
  3. AMPHOTERICIN B [Suspect]
     Indication: ENCEPHALOPATHY
     Dosage: 20 MG (20 MG, 1 IN 1 D), INTRAVENOUS
     Route: 042
     Dates: start: 20041115, end: 20041124
  4. AMPHOTERICIN B [Suspect]
     Indication: HISTOPLASMOSIS
     Dosage: 20 MG (20 MG, 1 IN 1 D), INTRAVENOUS
     Route: 042
     Dates: start: 20041115, end: 20041124
  5. PYRAZINAMIDE [Concomitant]
  6. LEVOTHYROXINE SODIUM [Concomitant]
  7. WARFARIN SODIUM [Concomitant]
  8. PYRIDOXAL PHOSPHATE (PYRIDOXAL PHOSPHATE) [Concomitant]
  9. MARZULENE S (LEVOGLUTAMIDE, SODIUM GUALENATE) [Concomitant]
  10. LACTOBACILLUS BIFIDUS, LYOPHILIZED (LACTOBACILLUS BIFIDUS, LYOPHILIZED [Concomitant]
  11. PIRENZEPINE DIHYDROCHLORIDE (PIRENZEPINE DIHYDROCHLORIDE) [Concomitant]
  12. ASPARTATE POTASSIUM (ASPARTATE POTASSIUM) [Concomitant]

REACTIONS (11)
  - BLOOD POTASSIUM DECREASED [None]
  - CARDIAC FAILURE [None]
  - CONDITION AGGRAVATED [None]
  - COUGH [None]
  - DRUG INEFFECTIVE [None]
  - DYSSTASIA [None]
  - HISTOPLASMOSIS [None]
  - MUSCULAR WEAKNESS [None]
  - MYOPATHY [None]
  - PLEURAL EFFUSION [None]
  - RENAL IMPAIRMENT [None]
